FAERS Safety Report 4437744-1 (Version None)
Quarter: 2004Q3

REPORT INFORMATION
  Report Type: 
  Country: None (occurrence: None)
  Receive Date: 20040831
  Receipt Date: 20040819
  Transmission Date: 20050211
  Serious: Yes (Death, Other)
  Sender: FDA-Public Use
  Company Number: GBWYE993623AUG04

PATIENT
  Age: 38 Year
  Sex: Female
  Weight: 52 kg

DRUGS (7)
  1. ENBREL [Suspect]
     Indication: RHEUMATOID ARTHRITIS
     Dosage: UNKNOWN
  2. DIAZEPAM [Concomitant]
     Route: 048
  3. LANSOPRAZOLE [Concomitant]
     Route: 048
  4. DEXTROPROPOXYPHENE HYDROCHLORIDE [Concomitant]
     Dosage: 2 FOUR TIMES DAILY
  5. CELECOXIB [Concomitant]
  6. DOSULEPIN [Concomitant]
     Route: 048
  7. ACETAMINOPHEN [Concomitant]

REACTIONS (2)
  - PNEUMONIA [None]
  - PULMONARY EMBOLISM [None]
